FAERS Safety Report 13843896 (Version 1)
Quarter: 2017Q3

REPORT INFORMATION
  Report Type: Spontaneous
  Country: LK (occurrence: LK)
  Receive Date: 20170808
  Receipt Date: 20170808
  Transmission Date: 20171127
  Serious: Yes (Hospitalization, Other)
  Sender: FDA-Public Use
  Company Number: LK-ALVOGEN-2017-ALVOGEN-092974

PATIENT
  Age: 63 Year
  Sex: Female

DRUGS (11)
  1. NITROUS OXIDE. [Suspect]
     Active Substance: NITROUS OXIDE
     Indication: MAINTENANCE OF ANAESTHESIA
  2. OXYGEN. [Suspect]
     Active Substance: OXYGEN
     Indication: MAINTENANCE OF ANAESTHESIA
  3. ATRACURIUM [Suspect]
     Active Substance: ATRACURIUM
     Indication: GENERAL ANAESTHESIA
     Route: 042
  4. OXYGEN. [Suspect]
     Active Substance: OXYGEN
     Indication: MAINTENANCE OF ANAESTHESIA
  5. FENTANYL. [Suspect]
     Active Substance: FENTANYL
     Indication: GENERAL ANAESTHESIA
     Route: 042
  6. MORPHINE [Suspect]
     Active Substance: MORPHINE
     Indication: PRODUCT USED FOR UNKNOWN INDICATION
     Route: 042
  7. MORPHINE [Suspect]
     Active Substance: MORPHINE
     Indication: PRODUCT USED FOR UNKNOWN INDICATION
     Route: 042
  8. ISOFLURANE. [Suspect]
     Active Substance: ISOFLURANE
     Indication: MAINTENANCE OF ANAESTHESIA
     Route: 055
  9. PROPOFOL. [Suspect]
     Active Substance: PROPOFOL
     Indication: GENERAL ANAESTHESIA
     Route: 042
  10. ATRACURIUM [Suspect]
     Active Substance: ATRACURIUM
     Indication: MAINTENANCE OF ANAESTHESIA
     Route: 055
  11. ISOFLURANE. [Suspect]
     Active Substance: ISOFLURANE
     Indication: MAINTENANCE OF ANAESTHESIA
     Route: 055

REACTIONS (2)
  - Stress cardiomyopathy [Recovered/Resolved]
  - Cardiogenic shock [Recovered/Resolved]
